FAERS Safety Report 11155693 (Version 1)
Quarter: 2015Q2

REPORT INFORMATION
  Report Type: Spontaneous
  Country: US (occurrence: US)
  Receive Date: 20150602
  Receipt Date: 20150602
  Transmission Date: 20150821
  Serious: Yes (Hospitalization)
  Sender: FDA-Public Use
  Company Number: US-JNJFOC-20150518091

PATIENT
  Age: 13 Year
  Sex: Male
  Weight: 49.9 kg

DRUGS (4)
  1. REMICADE [Suspect]
     Active Substance: INFLIXIMAB
     Indication: CROHN^S DISEASE
     Route: 042
     Dates: start: 2015, end: 201504
  2. REMICADE [Suspect]
     Active Substance: INFLIXIMAB
     Indication: CROHN^S DISEASE
     Route: 042
     Dates: start: 20141212, end: 2015
  3. ACTIGALL [Concomitant]
     Active Substance: URSODIOL
     Route: 065
  4. PENTASA [Concomitant]
     Active Substance: MESALAMINE
     Route: 065

REACTIONS (2)
  - Crohn^s disease [Unknown]
  - Drug specific antibody present [Unknown]

NARRATIVE: CASE EVENT DATE: 201503
